FAERS Safety Report 9264037 (Version 2)
Quarter: 2013Q2

REPORT INFORMATION
  Report Type: Spontaneous
  Country: US (occurrence: US)
  Receive Date: 20130430
  Receipt Date: 20130530
  Transmission Date: 20140414
  Serious: Yes (Other)
  Sender: FDA-Public Use
  Company Number: US-AMGEN-USASP2013029430

PATIENT
  Age: 55 Year
  Sex: Female
  Weight: 57 kg

DRUGS (10)
  1. ENBREL [Suspect]
     Indication: PRODUCT USED FOR UNKNOWN INDICATION
     Dosage: 50 MG, QWK FOR 4 WEEKS
     Route: 058
  2. NAPROXEN [Concomitant]
     Dosage: UNK
  3. METHOTREXATE [Concomitant]
     Dosage: UNK
  4. PREDNISONE [Concomitant]
     Dosage: UNK
  5. FOLIC ACID [Concomitant]
     Dosage: UNK
  6. CALCIUM D                          /00944201/ [Concomitant]
     Dosage: UNK
  7. VITAMIN B COMPLEX [Concomitant]
     Dosage: UNK
  8. VITAMIN E                          /00110501/ [Concomitant]
     Dosage: 100 UNIT, UNK
  9. VITAMIN C                          /00008001/ [Concomitant]
     Dosage: 500 MG, UNK
  10. OMEGA 3                            /01334101/ [Concomitant]
     Dosage: UNK

REACTIONS (1)
  - Pulmonary mass [Unknown]
